FAERS Safety Report 21778864 (Version 3)
Quarter: 2023Q2

REPORT INFORMATION
  Report Type: Report from Study
  Country: DE (occurrence: DE)
  Receive Date: 20221226
  Receipt Date: 20230623
  Transmission Date: 20230722
  Serious: Yes (Hospitalization)
  Sender: FDA-Public Use
  Company Number: DE-ABBVIE-4247655

PATIENT
  Age: 51 Year
  Sex: Male
  Weight: 93 kg

DRUGS (2)
  1. SKYRIZI [Suspect]
     Active Substance: RISANKIZUMAB-RZAA
     Indication: Psoriasis
     Route: 058
     Dates: start: 20220809
  2. ALBUTEROL [Concomitant]
     Active Substance: ALBUTEROL
     Indication: Asthma
     Dosage: SPRAY

REACTIONS (4)
  - Chest discomfort [Recovered/Resolved with Sequelae]
  - Coronary artery disease [Recovered/Resolved with Sequelae]
  - Dilated cardiomyopathy [Recovered/Resolved with Sequelae]
  - Unevaluable event [Unknown]

NARRATIVE: CASE EVENT DATE: 20221014
